FAERS Safety Report 14128681 (Version 3)
Quarter: 2018Q1

REPORT INFORMATION
  Report Type: Report from Study
  Country: US (occurrence: US)
  Receive Date: 20171026
  Receipt Date: 20180322
  Transmission Date: 20180508
  Serious: Yes (Hospitalization, Other)
  Sender: FDA-Public Use
  Company Number: US-AMGEN-USASL2017158551

PATIENT
  Age: 79 Year
  Sex: Male

DRUGS (1)
  1. REPATHA [Suspect]
     Active Substance: EVOLOCUMAB
     Indication: TYPE V HYPERLIPIDAEMIA
     Dosage: 420 MG, Q4WK
     Route: 058

REACTIONS (4)
  - Malignant melanoma [Unknown]
  - Cardiac flutter [Recovered/Resolved]
  - Colonoscopy [Unknown]
  - Endoscopy [Unknown]

NARRATIVE: CASE EVENT DATE: 201709
